FAERS Safety Report 4575291-7 (Version None)
Quarter: 2005Q1

REPORT INFORMATION
  Report Type: 
  Country: None (occurrence: None)
  Receive Date: 20050127
  Receipt Date: 20050127
  Transmission Date: 20050727
  Serious: Yes (Other)
  Sender: FDA-Public Use
  Company Number: None

PATIENT
  Sex: Female

DRUGS (4)
  1. ZOFRAN [Suspect]
     Indication: POST PROCEDURAL NAUSEA
     Dosage: 2 MG IV Q 8 HRS PRN
     Route: 042
     Dates: start: 20040124
  2. HYDROMORPHONE [Concomitant]
  3. PCA [Concomitant]
  4. ANCEF [Concomitant]

REACTIONS (2)
  - DYSARTHRIA [None]
  - DYSKINESIA [None]
